FAERS Safety Report 12367870 (Version 5)
Quarter: 2018Q2

REPORT INFORMATION
  Report Type: Spontaneous
  Country: US (occurrence: US)
  Receive Date: 20160513
  Receipt Date: 20180421
  Transmission Date: 20180711
  Serious: Yes (Other)
  Sender: FDA-Public Use
  Company Number: US-AMGEN-USASP2016058574

PATIENT
  Age: 60 Year
  Sex: Female
  Weight: 60.32 kg

DRUGS (11)
  1. CALCIUM CARBONATE AND VITAMIN D [Concomitant]
     Active Substance: CALCIUM CARBONATE\VITAMIN D
     Dosage: UNK
     Route: 048
  2. POLYVINYL ALCOHOL [Concomitant]
     Active Substance: POLYVINYL ALCOHOL
     Dosage: UNK
  3. IBUPROFEN. [Concomitant]
     Active Substance: IBUPROFEN
     Dosage: 200 MG, UNK
  4. METHOTREXATE. [Concomitant]
     Active Substance: METHOTREXATE
     Dosage: 2.5 MG, UNK
     Dates: start: 201410
  5. OMEGA-3 FATTY ACIDS [Concomitant]
     Active Substance: OMEGA-3 FATTY ACIDS
     Dosage: 1000 MG, UNK
  6. XELJANZ [Concomitant]
     Active Substance: TOFACITINIB CITRATE
     Dosage: 5 MG, BID
     Route: 048
  7. ENBREL [Suspect]
     Active Substance: ETANERCEPT
     Indication: PRODUCT USED FOR UNKNOWN INDICATION
     Dosage: UNK
     Route: 065
     Dates: start: 2015
  8. FOLIC ACID. [Concomitant]
     Active Substance: FOLIC ACID
     Dosage: 1 MG, UNK
  9. PREDNISONE. [Concomitant]
     Active Substance: PREDNISONE
     Dosage: 1 MG, UNK
  10. VITAMIN C [Concomitant]
     Active Substance: ASCORBIC ACID
     Dosage: 500 MG, UNK
  11. INFLUENZA VACCINE [Concomitant]
     Active Substance: INFLUENZA VIRUS VACCINE
     Dosage: UNK
     Dates: start: 20160109

REACTIONS (24)
  - Dysuria [Unknown]
  - Vaginal discharge [Recovering/Resolving]
  - Spinal osteoarthritis [Unknown]
  - Headache [Recovered/Resolved]
  - Sleep disorder [Unknown]
  - Erythema [Recovered/Resolved]
  - Fatigue [Not Recovered/Not Resolved]
  - Irritable bowel syndrome [Unknown]
  - Synovitis [Unknown]
  - Nasopharyngitis [Not Recovered/Not Resolved]
  - Sjogren^s syndrome [Unknown]
  - Drug hypersensitivity [Unknown]
  - Carpal tunnel syndrome [Unknown]
  - Menopause [Unknown]
  - Stomatitis [Unknown]
  - Anaemia [Unknown]
  - Laryngitis [Not Recovered/Not Resolved]
  - Dyspepsia [Unknown]
  - Cough [Not Recovered/Not Resolved]
  - Rheumatoid arthritis [Unknown]
  - Osteoarthritis [Unknown]
  - Rheumatoid nodule [Unknown]
  - Metatarsalgia [Unknown]
  - Urinary tract infection [Recovered/Resolved]

NARRATIVE: CASE EVENT DATE: 20150609
